FAERS Safety Report 15239740 (Version 5)
Quarter: 2018Q4

REPORT INFORMATION
  Report Type: Spontaneous
  Country: US (occurrence: US)
  Receive Date: 20180803
  Receipt Date: 20181016
  Transmission Date: 20190204
  Serious: No
  Sender: FDA-Public Use
  Company Number: US-SA-2018SA203085

PATIENT
  Age: 13 Year
  Sex: Male

DRUGS (1)
  1. ZANTAC [Suspect]
     Active Substance: RANITIDINE HYDROCHLORIDE
     Indication: DYSPEPSIA
     Dosage: UNK, UNK
     Dates: start: 20180718

REACTIONS (2)
  - Ill-defined disorder [Not Recovered/Not Resolved]
  - Product complaint [Unknown]
